FAERS Safety Report 4330883-5 (Version None)
Quarter: 2004Q1

REPORT INFORMATION
  Report Type: 
  Country: None (occurrence: None)
  Receive Date: 20040331
  Receipt Date: 20040322
  Transmission Date: 20041129
  Serious: Yes (Hospitalization, Other)
  Sender: FDA-Public Use
  Company Number: 2003192247US

PATIENT
  Age: 5 Year
  Sex: Female
  Weight: 18 kg

DRUGS (3)
  1. CAMPTOSAR [Suspect]
     Indication: NEPHROBLASTOMA
     Dosage: 20 MG/M2, FOR 5 DAYS/WEEKLY, IV
     Route: 042
     Dates: start: 20031201, end: 20031205
  2. CAMPTOSAR [Suspect]
     Indication: NEPHROBLASTOMA
     Dosage: 20 MG/M2, FOR 5 DAYS/WEEKLY, IV
     Route: 042
     Dates: start: 20031208, end: 20031212
  3. RADIATION THERAPY [Suspect]
     Indication: NEPHROBLASTOMA

REACTIONS (3)
  - MALIGNANT NEOPLASM PROGRESSION [None]
  - NEPHROBLASTOMA [None]
  - PULMONARY FIBROSIS [None]
